FAERS Safety Report 13441617 (Version 1)
Quarter: 2017Q2

REPORT INFORMATION
  Report Type: Spontaneous
  Country: US (occurrence: US)
  Receive Date: 20170413
  Receipt Date: 20170413
  Transmission Date: 20170830
  Serious: Yes (Hospitalization)
  Sender: FDA-Public Use
  Company Number: US-JNJFOC-200208-1573

PATIENT
  Age: 3 Year
  Sex: Female

DRUGS (2)
  1. BENADRYL [Suspect]
     Active Substance: DIPHENHYDRAMINE HYDROCHLORIDE
     Indication: ACCIDENTAL EXPOSURE TO PRODUCT
     Dosage: DAILY DOSE TEXT: 10 CAPSULES ONCE (APPROXIMATELY 500 MG)
     Route: 048
  2. BENADRYL [Suspect]
     Active Substance: DIPHENHYDRAMINE HYDROCHLORIDE
     Route: 048

REACTIONS (14)
  - Disorientation [Recovered/Resolved]
  - Tremor [Recovered/Resolved]
  - Accidental overdose [Unknown]
  - Gait disturbance [Recovered/Resolved]
  - Athetosis [Recovered/Resolved]
  - Poor quality sleep [Recovered/Resolved]
  - Hypotension [Recovered/Resolved]
  - Body temperature increased [Recovered/Resolved]
  - Nervousness [Recovered/Resolved]
  - Heart rate increased [Recovered/Resolved]
  - Hyperreflexia [Recovered/Resolved]
  - Hallucination [Recovered/Resolved]
  - Muscle twitching [Recovered/Resolved]
  - Mydriasis [Recovered/Resolved]
